FAERS Safety Report 24400658 (Version 1)
Quarter: 2024Q4

REPORT INFORMATION
  Report Type: Report from Study
  Country: CA (occurrence: CA)
  Receive Date: 20241006
  Receipt Date: 20241006
  Transmission Date: 20250115
  Serious: Yes (Other)
  Sender: ROCHE
  Company Number: CA-ROCHE-10000095222

PATIENT
  Age: 43 Year
  Sex: Female

DRUGS (1)
  1. OCREVUS [Suspect]
     Active Substance: OCRELIZUMAB
     Indication: Relapsing-remitting multiple sclerosis
     Dosage: MORE DOSAGE INFORMATION IS 300 MG AT DAY 0 AND 14, THEN 600 MG EVERY 6 MONTH
     Route: 042
     Dates: start: 20200110

REACTIONS (4)
  - Cellulitis [Recovering/Resolving]
  - Abscess [Recovering/Resolving]
  - Sepsis [Recovering/Resolving]
  - Cyst [Recovered/Resolved with Sequelae]

NARRATIVE: CASE EVENT DATE: 20240915
